FAERS Safety Report 4684437-1 (Version None)
Quarter: 2005Q2

REPORT INFORMATION
  Report Type: 
  Country: None (occurrence: None)
  Receive Date: 20050531
  Receipt Date: 20050303
  Transmission Date: 20051028
  Serious: Yes (Hospitalization)
  Sender: FDA-Public Use
  Company Number: US_0503114149

PATIENT
  Sex: Female

DRUGS (1)
  1. ZYPREXA [Suspect]
     Indication: DEPRESSION
     Dates: start: 20010709, end: 20040505

REACTIONS (7)
  - ANXIETY [None]
  - DEPRESSED MOOD [None]
  - DIABETES MELLITUS [None]
  - FEAR [None]
  - HYPERGLYCAEMIA [None]
  - PAIN [None]
  - PANCREATITIS [None]
